FAERS Safety Report 8553192-7 (Version None)
Quarter: 2012Q3

REPORT INFORMATION
  Report Type: 
  Country: None (occurrence: None)
  Receive Date: 20120731
  Receipt Date: 20120727
  Transmission Date: 20120928
  Serious: Yes (Hospitalization, Other)
  Sender: FDA-Public Use
  Company Number: US-SANOFI-AVENTIS-2012SA046470

PATIENT
  Sex: Female
  Weight: 157 kg

DRUGS (18)
  1. MULTAQ [Suspect]
     Indication: ATRIAL FIBRILLATION
     Route: 048
     Dates: start: 20110623, end: 20120210
  2. MOTRIN [Concomitant]
     Indication: PAIN
  3. NAPROXEN [Concomitant]
     Indication: PAIN
  4. PRAVASTATIN [Concomitant]
     Dates: end: 20120101
  5. DABIGATRAN ETEXILATE [Suspect]
     Indication: ANTICOAGULANT THERAPY
     Route: 065
     Dates: start: 20110623, end: 20110701
  6. PROMETRIUM [Concomitant]
     Indication: MENOPAUSE
  7. ZOLOFT [Concomitant]
     Indication: ANXIETY
     Dates: start: 20040101, end: 20120101
  8. LEVOXYL [Concomitant]
     Indication: HYPOTHYROIDISM
  9. ESTRATEST H.S. [Concomitant]
     Indication: MENOPAUSE
  10. ATIVAN [Concomitant]
     Indication: ANXIETY
     Dates: start: 20040101
  11. ATENOLOL [Concomitant]
     Dates: start: 20110301, end: 20110601
  12. LASIX [Concomitant]
  13. RANITIDINE [Concomitant]
     Indication: GASTRIC DISORDER
     Dates: start: 20110601, end: 20110701
  14. MULTAQ [Suspect]
     Indication: ATRIAL FLUTTER
     Route: 048
     Dates: start: 20110623, end: 20120210
  15. ASPIRIN [Concomitant]
     Indication: ANTICOAGULANT THERAPY
     Dates: start: 20110601
  16. LIPITOR [Concomitant]
     Dates: start: 20120101
  17. VIAGRA [Concomitant]
     Indication: PULMONARY HYPERTENSION
     Dates: start: 20110601, end: 20110701
  18. SUMATRIPTAN [Concomitant]
     Indication: MIGRAINE
     Dates: start: 20050101, end: 20110301

REACTIONS (5)
  - DYSPNOEA [None]
  - PLEURAL EFFUSION [None]
  - CHEST DISCOMFORT [None]
  - COUGH [None]
  - PULMONARY FUNCTION TEST ABNORMAL [None]
